FAERS Safety Report 26179378 (Version 1)
Quarter: 2025Q4

REPORT INFORMATION
  Report Type: Spontaneous
  Country: AU (occurrence: AU)
  Receive Date: 20251219
  Receipt Date: 20251219
  Transmission Date: 20260117
  Serious: Yes (Hospitalization, Other)
  Sender: BIOVITRUM
  Company Number: AU-BIOVITRUM-2025-AU-017735

PATIENT
  Sex: Female

DRUGS (3)
  1. ANAKINRA [Suspect]
     Active Substance: ANAKINRA
     Indication: Rheumatoid arthritis
  2. ANAKINRA [Suspect]
     Active Substance: ANAKINRA
     Indication: Felty^s syndrome
     Dosage: PER DAY
     Dates: start: 20251130
  3. ANAKINRA [Suspect]
     Active Substance: ANAKINRA
     Indication: Haemophagocytic lymphohistiocytosis

REACTIONS (8)
  - Diabetes mellitus [Unknown]
  - Confusional state [Not Recovered/Not Resolved]
  - Escherichia sepsis [Unknown]
  - Neutropenic sepsis [Unknown]
  - Apathy [Unknown]
  - Haemophagocytic lymphohistiocytosis [Unknown]
  - Condition aggravated [Unknown]
  - Pneumonia [Unknown]

NARRATIVE: CASE EVENT DATE: 20251210
